FAERS Safety Report 10221255 (Version 3)
Quarter: 2014Q4

REPORT INFORMATION
  Report Type: Spontaneous
  Country: US (occurrence: None)
  Receive Date: 20140604
  Receipt Date: 20141007
  Transmission Date: 20150528
  Serious: Yes (Death)
  Sender: FDA-Public Use
  Company Number: 1713747-2014-99979

PATIENT
  Age: 71 Year
  Sex: Male
  Weight: 79.9 kg

DRUGS (22)
  1. HYDROCODONE [Concomitant]
     Active Substance: HYDROCODONE
  2. CYMBALTA [Concomitant]
     Active Substance: DULOXETINE HYDROCHLORIDE
  3. MIRALX [Concomitant]
  4. GLIPIZIDE. [Concomitant]
     Active Substance: GLIPIZIDE
  5. DIALYVITE [Concomitant]
     Active Substance: ASCORBIC ACID\BIOTIN\CALCIUM PANTOTHENATE\COBALAMIN\FOLIC ACID\NIACINAMIDE\PYRIDOXINE HYDROCHLORIDE\RIBOFLAVIN\THIAMINE MONONITRATE
  6. TRICOR [Concomitant]
     Active Substance: FENOFIBRATE
  7. FMS BLOODLINES [Concomitant]
  8. FMS HEMODIALYSIS SYSTEM [Concomitant]
  9. NATURALYTE [Concomitant]
     Active Substance: ACETIC ACID\SODIUM ACETATE
  10. AMBIEN [Concomitant]
     Active Substance: ZOLPIDEM TARTRATE
  11. DIFLUCAN [Concomitant]
     Active Substance: FLUCONAZOLE
  12. BACTROBAN [Concomitant]
     Active Substance: MUPIROCIN\MUPIROCIN CALCIUM
  13. KCL [Concomitant]
     Active Substance: POTASSIUM CHLORIDE
  14. METOPROLOL [Suspect]
     Active Substance: METOPROLOL
  15. GRANUFLO [Concomitant]
     Active Substance: ACETIC ACID\SODIUM ACETATE
  16. EPOGEN [Concomitant]
     Active Substance: ERYTHROPOIETIN
  17. GENTAMYCIN CREAM [Concomitant]
  18. FLOSMOL [Concomitant]
  19. 0.9% SODIUM CHLORIDE INJECTION, 1L [Suspect]
     Active Substance: SODIUM CHLORIDE
     Indication: CHRONIC KIDNEY DISEASE
     Dosage: HEMODALYSIS
     Dates: start: 20091212
  20. FMS DIALYZER [Concomitant]
  21. PROCTOSOL [Concomitant]
  22. VYTORIN [Concomitant]
     Active Substance: EZETIMIBE\SIMVASTATIN

REACTIONS (1)
  - Cardiovascular disorder [None]

NARRATIVE: CASE EVENT DATE: 20091212
